FAERS Safety Report 5033916-6 (Version None)
Quarter: 2006Q2

REPORT INFORMATION
  Report Type: 
  Country: None (occurrence: None)
  Receive Date: 20060623
  Receipt Date: 20060407
  Transmission Date: 20061013
  Serious: Yes (Hospitalization)
  Sender: FDA-Public Use
  Company Number: AU-BOEHRINGER INGELHEIM PHARMACEUTICALS, INC.-2006-BP-03954AU

PATIENT
  Age: 65 Year
  Sex: Female

DRUGS (1)
  1. MOBIC [Suspect]
     Route: 048

REACTIONS (1)
  - INTRACRANIAL ANEURYSM [None]
